FAERS Safety Report 14812922 (Version 1)
Quarter: 2018Q2

REPORT INFORMATION
  Report Type: Spontaneous
  Country: BE (occurrence: BE)
  Receive Date: 20180426
  Receipt Date: 20180426
  Transmission Date: 20180711
  Serious: Yes (Other)
  Sender: FDA-Public Use
  Company Number: BE-ACCORD-066123

PATIENT
  Age: 72 Year
  Sex: Female
  Weight: 72 kg

DRUGS (7)
  1. SOLU-MEDROL [Concomitant]
     Active Substance: METHYLPREDNISOLONE SODIUM SUCCINATE
     Route: 042
     Dates: start: 20180302
  2. XELODA [Concomitant]
     Active Substance: CAPECITABINE
     Dosage: 3500 MG PER DAY, DIVIDED IN 2 GIFTS DURING 14 DAYS
     Route: 048
     Dates: start: 20180302
  3. ZOFRAN [Concomitant]
     Active Substance: ONDANSETRON HYDROCHLORIDE
     Dosage: 2X1 CO PER DAY ON DAY 2 AND 3 AFTER CHEMO
     Route: 048
     Dates: start: 20180302
  4. STILNOCT [Concomitant]
     Active Substance: ZOLPIDEM TARTRATE
     Route: 048
  5. OXALIPLATIN ACCORD [Suspect]
     Active Substance: OXALIPLATIN
     Indication: RECTOSIGMOID CANCER
     Dosage: STRENGTH: 200 MG AND 50 MG?DOSE: 130 MG/M2
     Route: 042
     Dates: start: 20180302
  6. ASAFLOW [Concomitant]
     Active Substance: ASPIRIN
     Route: 048
  7. ONDANSETRON [Concomitant]
     Active Substance: ONDANSETRON
     Route: 042
     Dates: start: 20180302

REACTIONS (3)
  - Hypotension [Recovered/Resolved]
  - Bronchospasm [Recovered/Resolved]
  - Muscle spasms [Recovered/Resolved]

NARRATIVE: CASE EVENT DATE: 20180323
